FAERS Safety Report 6598129-5 (Version None)
Quarter: 2010Q1

REPORT INFORMATION
  Report Type: 
  Country: None (occurrence: None)
  Receive Date: 20100224
  Receipt Date: 20050210
  Transmission Date: 20100710
  Serious: No
  Sender: FDA-Public Use
  Company Number: US-ALLERGAN-200501343

PATIENT

DRUGS (1)
  1. BOTOX [Suspect]
     Indication: MIGRAINE
     Route: 030

REACTIONS (1)
  - DYSPHAGIA [None]
